FAERS Safety Report 22152214 (Version 1)
Quarter: 2023Q1

REPORT INFORMATION
  Report Type: Spontaneous
  Country: None (occurrence: GR)
  Receive Date: 20230329
  Receipt Date: 20230329
  Transmission Date: 20230418
  Serious: Yes (Other)
  Sender: FDA-Public Use
  Company Number: GR-Therakind Limited-2139671

PATIENT
  Age: 31 Year
  Sex: Male

DRUGS (4)
  1. METHOTREXATE [Suspect]
     Active Substance: METHOTREXATE
     Indication: Osteosarcoma
  2. DOXORUBICIN HYDROCHLORIDE [Suspect]
     Active Substance: DOXORUBICIN HYDROCHLORIDE
  3. MIFAMURTIDE [Suspect]
     Active Substance: MIFAMURTIDE
  4. CISPLATIN [Suspect]
     Active Substance: CISPLATIN

REACTIONS (5)
  - Hypotension [Unknown]
  - Cough [Unknown]
  - Dyspnoea [Unknown]
  - Bradycardia [Unknown]
  - Product use in unapproved indication [Unknown]

NARRATIVE: CASE EVENT DATE: 20200224
